FAERS Safety Report 16747032 (Version 2)
Quarter: 2019Q4

REPORT INFORMATION
  Report Type: Spontaneous
  Country: US (occurrence: US)
  Receive Date: 20190827
  Receipt Date: 20191016
  Transmission Date: 20200122
  Serious: No
  Sender: FDA-Public Use
  Company Number: US-SA-2019SA236566

PATIENT
  Age: 24 Year

DRUGS (1)
  1. CERDELGA [Suspect]
     Active Substance: ELIGLUSTAT
     Dosage: UNK UNK, UNK
     Route: 065
     Dates: start: 20140615

REACTIONS (2)
  - Glucosylsphingosine increased [Unknown]
  - Chitotriosidase increased [Not Recovered/Not Resolved]

NARRATIVE: CASE EVENT DATE: 2014
